FAERS Safety Report 9441735 (Version 1)
Quarter: 2013Q3

REPORT INFORMATION
  Report Type: Report from Study
  Country: CA (occurrence: CA)
  Receive Date: 20130806
  Receipt Date: 20130806
  Transmission Date: 20140515
  Serious: Yes (Death)
  Sender: FDA-Public Use
  Company Number: CA-ROCHE-1257059

PATIENT
  Sex: Male

DRUGS (4)
  1. ZELBORAF [Suspect]
     Indication: METASTATIC MALIGNANT MELANOMA
     Route: 048
  2. BABY ASPIRIN [Concomitant]
  3. ALEVE [Concomitant]
     Dosage: FREQUENCY REPORTED  AS REQUIRED
     Route: 065
  4. IBUPROFEN [Concomitant]
     Dosage: FREQUENCY REPORTED  AS REQUIRED
     Route: 065

REACTIONS (1)
  - Death [Fatal]
